FAERS Safety Report 6466965-1 (Version None)
Quarter: 2009Q4

REPORT INFORMATION
  Report Type: 
  Country: None (occurrence: None)
  Receive Date: 20091202
  Receipt Date: 20091119
  Transmission Date: 20100525
  Serious: No
  Sender: FDA-Public Use
  Company Number: JP-ELI_LILLY_AND_COMPANY-JP200910004923

PATIENT
  Sex: Male
  Weight: 45.7 kg

DRUGS (5)
  1. STRATTERA [Suspect]
     Indication: ATTENTION DEFICIT/HYPERACTIVITY DISORDER
     Dosage: 20 MG, DAILY (1/D)
     Route: 048
     Dates: start: 20090907, end: 20090913
  2. STRATTERA [Suspect]
     Dosage: 35 MG, DAILY (1/D)
     Route: 048
     Dates: start: 20090914, end: 20090927
  3. STRATTERA [Suspect]
     Dosage: 20 MG, DAILY (1/D)
     Route: 048
     Dates: start: 20090928, end: 20091003
  4. VALPROATE SODIUM [Concomitant]
     Indication: EPILEPSY
     Dosage: 650 MG, DAILY (1/D)
     Route: 048
     Dates: start: 20070101
  5. CARBAMAZEPINE [Concomitant]
     Indication: EPILEPSY
     Dosage: 240 MG, DAILY (1/D)
     Route: 048

REACTIONS (1)
  - EPILEPSY [None]
